FAERS Safety Report 15136143 (Version 1)
Quarter: 2018Q3

REPORT INFORMATION
  Report Type: Spontaneous
  Country: US (occurrence: US)
  Receive Date: 20180617
  Receipt Date: 20180617
  Transmission Date: 20181010
  Serious: Yes (Other)
  Sender: FDA-Public Use
  Company Number: None

PATIENT
  Age: 54 Year
  Sex: Female
  Weight: 87.75 kg

DRUGS (7)
  1. MAGNESIUM [Concomitant]
     Active Substance: MAGNESIUM
  2. PROTONIX [Concomitant]
     Active Substance: PANTOPRAZOLE SODIUM
  3. ARMOUR THYROID [Concomitant]
     Active Substance: THYROID, PORCINE
  4. VITAMIN D [Concomitant]
     Active Substance: CHOLECALCIFEROL
  5. ALEVE [Concomitant]
     Active Substance: NAPROXEN SODIUM
  6. CITALOPRAM [Suspect]
     Active Substance: CITALOPRAM HYDROBROMIDE
     Indication: ANXIETY
     Dosage: ?          QUANTITY:1 TABLET(S);?
     Route: 048
     Dates: start: 20180512, end: 20180616
  7. ADVIL [Concomitant]
     Active Substance: IBUPROFEN

REACTIONS (3)
  - Product substitution issue [None]
  - Nightmare [None]
  - Sleep disorder [None]

NARRATIVE: CASE EVENT DATE: 20180616
